FAERS Safety Report 5420913-1 (Version None)
Quarter: 2007Q3

REPORT INFORMATION
  Report Type: 
  Country: None (occurrence: None)
  Receive Date: 20070821
  Receipt Date: 20070810
  Transmission Date: 20080115
  Serious: Yes (Life-Threatening)
  Sender: FDA-Public Use
  Company Number: FR-ROCHE-511574

PATIENT
  Age: 71 Year
  Sex: Female

DRUGS (1)
  1. ROCEPHIN [Suspect]
     Indication: URINARY TRACT INFECTION
     Dosage: FORM INJECTABLE SOLUTION
     Route: 042
     Dates: start: 20070708, end: 20070714

REACTIONS (1)
  - PANCYTOPENIA [None]
